FAERS Safety Report 8599566 (Version 4)
Quarter: 2013Q1

REPORT INFORMATION
  Report Type: Spontaneous
  Country: US (occurrence: US)
  Receive Date: 20120605
  Receipt Date: 20130227
  Transmission Date: 20140127
  Serious: Yes (Other)
  Sender: FDA-Public Use
  Company Number: US-JNJFOC-20120521101

PATIENT
  Sex: Female

DRUGS (4)
  1. DOXORUBICIN HYDROCHLORIDE (DOXIL) [Suspect]
     Indication: OVARIAN CANCER RECURRENT
     Dosage: AFTER 6 CYCLES INDUCTION, MAINTAINED ON DOXORUBICIN FOR APPROXIMATELY 11 YEARS
     Route: 042
  2. CARBOPLATIN [Suspect]
     Indication: OVARIAN CANCER RECURRENT
     Dosage: COMPLETED 6 CYCLES
     Route: 065
  3. PACLITAXEL [Suspect]
     Indication: OVARIAN CANCER RECURRENT
     Dosage: COMPLETED 6 CYCLES
     Route: 065
  4. TOPOTECAN [Suspect]
     Indication: OVARIAN CANCER RECURRENT
     Dosage: COMPLETED 6 CYCLES
     Route: 065

REACTIONS (2)
  - Squamous cell carcinoma of the oral cavity [Recovered/Resolved]
  - Squamous cell carcinoma of head and neck [Unknown]
